FAERS Safety Report 21102605 (Version 6)
Quarter: 2023Q2

REPORT INFORMATION
  Report Type: Report from Study
  Country: US (occurrence: US)
  Receive Date: 20220719
  Receipt Date: 20230405
  Transmission Date: 20230722
  Serious: Yes (Hospitalization, Other)
  Sender: FDA-Public Use
  Company Number: US-ABBVIE-22K-163-4389387-00

PATIENT
  Sex: Female
  Weight: 52.616 kg

DRUGS (7)
  1. HUMIRA [Suspect]
     Active Substance: ADALIMUMAB
     Indication: Colitis ulcerative
     Dosage: CITRATE FREE
     Route: 058
     Dates: start: 202112
  2. HUMIRA [Suspect]
     Active Substance: ADALIMUMAB
     Indication: Colitis ulcerative
     Dosage: CITRATE FREE
     Route: 058
  3. HUMIRA [Suspect]
     Active Substance: ADALIMUMAB
     Dosage: CITRATE FREE
     Route: 058
  4. PREDNISONE [Concomitant]
     Active Substance: PREDNISONE
     Indication: Product used for unknown indication
     Route: 065
  5. PREDNISONE [Concomitant]
     Active Substance: PREDNISONE
     Indication: Product used for unknown indication
     Route: 065
  6. PREDNISONE [Concomitant]
     Active Substance: PREDNISONE
     Indication: Product used for unknown indication
     Route: 065
  7. PREDNISONE [Concomitant]
     Active Substance: PREDNISONE
     Indication: Product used for unknown indication
     Route: 065

REACTIONS (12)
  - Colitis ulcerative [Recovered/Resolved]
  - Transfusion [Recovered/Resolved]
  - Blood potassium decreased [Unknown]
  - Full blood count abnormal [Recovered/Resolved]
  - Haemoglobin decreased [Recovering/Resolving]
  - Haemorrhoidal haemorrhage [Recovered/Resolved]
  - Peripheral swelling [Unknown]
  - Anal fissure [Unknown]
  - Colitis ulcerative [Recovered/Resolved]
  - Feeling hot [Unknown]
  - Haematochezia [Unknown]
  - Anal fissure haemorrhage [Recovered/Resolved]

NARRATIVE: CASE EVENT DATE: 20220101
